FAERS Safety Report 13936954 (Version 1)
Quarter: 2017Q3

REPORT INFORMATION
  Report Type: Spontaneous
  Country: GB (occurrence: GB)
  Receive Date: 20170905
  Receipt Date: 20170905
  Transmission Date: 20171127
  Serious: Yes (Disabling)
  Sender: FDA-Public Use
  Company Number: PHFR2017GB007186

PATIENT
  Age: 33 Year
  Sex: Female

DRUGS (2)
  1. FLUOXETINE HYDROCHLORIDE. [Suspect]
     Active Substance: FLUOXETINE HYDROCHLORIDE
     Indication: PRODUCT USED FOR UNKNOWN INDICATION
     Dosage: 20 MG, UNK; GRADUAL REDUCTION FROM 20MG DAILY TO 0
     Route: 048
     Dates: start: 201507, end: 201509
  2. SERTRALINE HYDROCHLORIDE. [Suspect]
     Active Substance: SERTRALINE HYDROCHLORIDE
     Indication: DEPRESSION
     Dosage: VARIABLE - BETWEEN 0-150MG DAILY
     Route: 048
     Dates: start: 200109, end: 20170816

REACTIONS (8)
  - Condition aggravated [Unknown]
  - Dependence [Unknown]
  - Paraesthesia [Unknown]
  - Withdrawal syndrome [Not Recovered/Not Resolved]
  - Confusional state [Unknown]
  - Headache [Unknown]
  - Suicidal ideation [Unknown]
  - Neurological symptom [Unknown]
